FAERS Safety Report 7449911-3 (Version None)
Quarter: 2011Q2

REPORT INFORMATION
  Report Type: 
  Country: None (occurrence: None)
  Receive Date: 20110502
  Receipt Date: 20110405
  Transmission Date: 20111010
  Serious: Yes (Other)
  Sender: FDA-Public Use
  Company Number: US-BAYER-201037616NA

PATIENT
  Age: 23 Year
  Sex: Female
  Weight: 56.236 kg

DRUGS (8)
  1. YAZ [Suspect]
     Indication: ACNE
     Dosage: UNK
     Dates: start: 20060101, end: 20090101
  2. YASMIN [Suspect]
     Indication: ACNE
     Dates: start: 20060101, end: 20090101
  3. DROSPIRENONE AND ETHINYL ESTRADIOL [Suspect]
     Indication: ACNE
     Dosage: UNK
     Dates: start: 20060101, end: 20090101
  4. VICODIN [Concomitant]
     Dosage: UNK UNK, PRN
     Route: 048
     Dates: start: 20071201
  5. ALBUTEROL [Concomitant]
  6. IBUPROFEN [Concomitant]
  7. LOESTRIN FE 1/20 [Concomitant]
     Dosage: UNK
     Dates: start: 20070801
  8. LEVAQUIN [Concomitant]
     Indication: URINARY TRACT INFECTION
     Dosage: UNK
     Route: 048
     Dates: start: 20071201

REACTIONS (11)
  - ERUCTATION [None]
  - ABDOMINAL PAIN [None]
  - DIARRHOEA [None]
  - ABDOMINAL PAIN UPPER [None]
  - FLANK PAIN [None]
  - BACK PAIN [None]
  - PAIN [None]
  - CHOLECYSTITIS CHRONIC [None]
  - FLATULENCE [None]
  - INJURY [None]
  - ABDOMINAL DISTENSION [None]
